FAERS Safety Report 5706226-9 (Version None)
Quarter: 2008Q2

REPORT INFORMATION
  Report Type: 
  Country: None (occurrence: None)
  Receive Date: 20080415
  Receipt Date: 20080320
  Transmission Date: 20081010
  Serious: No
  Sender: FDA-Public Use
  Company Number: US-BOEHRINGER INGELHEIM GMBH, GERMANY-2008-BP-04470BP

PATIENT
  Sex: Female

DRUGS (1)
  1. ATROVENT HFA [Suspect]
     Indication: BRONCHITIS
     Route: 055
     Dates: start: 20080313, end: 20080320

REACTIONS (5)
  - GLOSSODYNIA [None]
  - LIP SWELLING [None]
  - STOMATITIS [None]
  - SWOLLEN TONGUE [None]
  - TOOTHACHE [None]
